FAERS Safety Report 5944373-7 (Version None)
Quarter: 2008Q4

REPORT INFORMATION
  Report Type: 
  Country: None (occurrence: None)
  Receive Date: 20081106
  Receipt Date: 20081106
  Transmission Date: 20090506
  Serious: Yes (Hospitalization)
  Sender: FDA-Public Use
  Company Number: None

PATIENT
  Sex: Male
  Weight: 105 kg

DRUGS (2)
  1. CISPLATIN [Suspect]
     Indication: TONSIL CANCER
     Dosage: 100MG/M2 IV Q4WKS
     Route: 042
     Dates: start: 20081027
  2. CETUXIMAB [Suspect]
     Indication: TONSIL CANCER
     Dosage: 250MG/M2 IV QWK
     Route: 042
     Dates: start: 20080820

REACTIONS (5)
  - ANOREXIA [None]
  - FATIGUE [None]
  - HYPOPHAGIA [None]
  - ILL-DEFINED DISORDER [None]
  - WEIGHT DECREASED [None]
